FAERS Safety Report 4572211-6 (Version None)
Quarter: 2005Q1

REPORT INFORMATION
  Report Type: 
  Country: None (occurrence: None)
  Receive Date: 20050203
  Receipt Date: 20050122
  Transmission Date: 20050727
  Serious: Yes (Hospitalization)
  Sender: FDA-Public Use
  Company Number: CA-2004-030761

PATIENT
  Age: 33 Year
  Sex: Male
  Weight: 84.5 kg

DRUGS (6)
  1. LEUKINE [Suspect]
     Indication: CROHN'S DISEASE
     Dosage: SEE IMAGE
     Route: 058
     Dates: start: 20040729, end: 20040820
  2. LEUKINE [Suspect]
     Indication: CROHN'S DISEASE
     Dosage: SEE IMAGE
     Route: 058
     Dates: start: 20040822
  3. VITAMIN D [Concomitant]
  4. CALCIUM (CALCIUM) [Concomitant]
  5. POTASSIUM CHLORIDE [Concomitant]
  6. PREDNISONE [Concomitant]

REACTIONS (3)
  - DISEASE RECURRENCE [None]
  - PERIANAL ABSCESS [None]
  - RECTAL ABSCESS [None]
